FAERS Safety Report 13212705 (Version 2)
Quarter: 2017Q1

REPORT INFORMATION
  Report Type: Spontaneous
  Country: FR (occurrence: FR)
  Receive Date: 20170210
  Receipt Date: 20170216
  Transmission Date: 20170428
  Serious: Yes (Other)
  Sender: FDA-Public Use
  Company Number: FR-PFIZER INC-2017056148

PATIENT
  Age: 75 Year
  Sex: Male

DRUGS (2)
  1. SUTENT [Suspect]
     Active Substance: SUNITINIB MALATE
     Indication: RENAL CANCER RECURRENT
     Dosage: 50 MG, UNK
     Dates: start: 2016
  2. SUTENT [Suspect]
     Active Substance: SUNITINIB MALATE
     Dosage: 37.5 MG, UNK

REACTIONS (4)
  - Fatigue [Not Recovered/Not Resolved]
  - Cardiotoxicity [Unknown]
  - Asthenia [Unknown]
  - Dyspnoea [Unknown]
